FAERS Safety Report 8074555-2 (Version None)
Quarter: 2012Q1

REPORT INFORMATION
  Report Type: 
  Country: None (occurrence: None)
  Receive Date: 20120120
  Receipt Date: 20120104
  Transmission Date: 20120608
  Serious: Yes (Other)
  Sender: FDA-Public Use
  Company Number: 1145745

PATIENT
  Age: 25 Month
  Sex: Male

DRUGS (4)
  1. CARBOPLATIN [Suspect]
     Indication: RETINOBLASTOMA UNILATERAL
     Dosage: 30 MG, INTRA-ARTERIAL
     Route: 013
  2. MELPHALAN HYDROCHLORIDE [Suspect]
     Indication: RETINOBLASTOMA UNILATERAL
     Dosage: 5 MG, INTRA-ARTERIAL
     Route: 013
  3. HEPARIN SODIUM [Concomitant]
  4. SODIUM CHLORIDE [Concomitant]

REACTIONS (6)
  - EXTRAOCULAR MUSCLE DISORDER [None]
  - RETINAL PIGMENT EPITHELIOPATHY [None]
  - EYELID PTOSIS [None]
  - PANCYTOPENIA [None]
  - EYELID OEDEMA [None]
  - CHORIORETINAL ATROPHY [None]
